FAERS Safety Report 4900359-2 (Version None)
Quarter: 2006Q1

REPORT INFORMATION
  Report Type: 
  Country: None (occurrence: None)
  Receive Date: 20060203
  Receipt Date: 20060105
  Transmission Date: 20060701
  Serious: Yes (Hospitalization)
  Sender: FDA-Public Use
  Company Number: 2006SE00159

PATIENT
  Age: 21 Year
  Sex: Male

DRUGS (5)
  1. SEROQUEL [Suspect]
     Indication: SCHIZOPHRENIA
     Route: 048
     Dates: start: 20051103, end: 20051103
  2. SEROQUEL [Interacting]
     Route: 048
     Dates: start: 20051104, end: 20051105
  3. SEROQUEL [Interacting]
     Route: 048
     Dates: start: 20051106, end: 20051101
  4. SEROQUEL [Interacting]
     Route: 048
     Dates: start: 20051101, end: 20051201
  5. SEROXAT [Interacting]
     Indication: SCHIZOPHRENIA
     Route: 048
     Dates: start: 20051026, end: 20051201

REACTIONS (3)
  - BODY TEMPERATURE INCREASED [None]
  - DRUG INTERACTION [None]
  - PANCYTOPENIA [None]
